FAERS Safety Report 5874351-8 (Version None)
Quarter: 2008Q3

REPORT INFORMATION
  Report Type: 
  Country: None (occurrence: None)
  Receive Date: 20080908
  Receipt Date: 20080902
  Transmission Date: 20090109
  Serious: Yes (Death)
  Sender: FDA-Public Use
  Company Number: US-GILEAD-2008-0017962

PATIENT
  Sex: Female

DRUGS (16)
  1. LETAIRIS [Suspect]
     Indication: PULMONARY ARTERIAL HYPERTENSION
     Route: 048
     Dates: start: 20080805, end: 20080805
  2. POTASSIUM CHLORIDE [Concomitant]
     Route: 048
  3. LASIX [Concomitant]
     Route: 048
  4. XANAX [Concomitant]
     Route: 048
  5. TETRACYCLINE HCL [Concomitant]
     Route: 048
  6. SYNTHROID [Concomitant]
     Route: 048
  7. CLIMARA [Concomitant]
     Route: 048
  8. ELAVIL [Concomitant]
     Route: 048
  9. NEURONTIN [Concomitant]
     Route: 048
  10. MIRALAX [Concomitant]
     Route: 048
  11. VITAMIN B6 [Concomitant]
     Route: 048
  12. FOLIC ACID [Concomitant]
     Route: 048
  13. SPIRIVA [Concomitant]
     Route: 048
  14. PREDNISONE [Concomitant]
     Route: 048
  15. PLAQUENIL [Concomitant]
     Route: 048
  16. CELLCEPT [Concomitant]
     Route: 048

REACTIONS (1)
  - DEATH [None]
